FAERS Safety Report 16701096 (Version 1)
Quarter: 2019Q3

REPORT INFORMATION
  Report Type: Spontaneous
  Country: US (occurrence: US)
  Receive Date: 20190814
  Receipt Date: 20190814
  Transmission Date: 20191004
  Serious: No
  Sender: FDA-Public Use
  Company Number: US-AMGEN-USASP2019128183

PATIENT
  Age: 25 Year
  Sex: Male

DRUGS (6)
  1. USTEKINUMAB [Concomitant]
     Active Substance: USTEKINUMAB
     Dosage: 90 MILLIGRAM, EVERY 12 WEEKS
  2. ETANERCEPT [Suspect]
     Active Substance: ETANERCEPT
     Indication: PRODUCT USED FOR UNKNOWN INDICATION
     Dosage: UNK
     Route: 065
  3. USTEKINUMAB [Concomitant]
     Active Substance: USTEKINUMAB
     Dosage: 45 MILLIGRAM, EVERY 12 WEEKS
  4. CYCLOSPORINE. [Concomitant]
     Active Substance: CYCLOSPORINE
     Dosage: UNK
  5. GUSELKUMAB [Concomitant]
     Active Substance: GUSELKUMAB
     Dosage: 100 MILLIGRAM, Q8WK
  6. USTEKINUMAB [Concomitant]
     Active Substance: USTEKINUMAB
     Dosage: 90 MILLIGRAM, EVERY 12 WEEKS

REACTIONS (2)
  - Psoriasis [Recovering/Resolving]
  - Treatment failure [Unknown]
